APPROVED DRUG PRODUCT: ERYTHROMYCIN
Active Ingredient: ERYTHROMYCIN
Strength: 5MG/GM
Dosage Form/Route: OINTMENT;OPHTHALMIC
Application: A062481 | Product #001
Applicant: PHARMAFAIR INC
Approved: Apr 5, 1984 | RLD: No | RS: No | Type: DISCN